FAERS Safety Report 4720357-1 (Version None)
Quarter: 2005Q3

REPORT INFORMATION
  Report Type: 
  Country: None (occurrence: None)
  Receive Date: 20050721
  Receipt Date: 20050617
  Transmission Date: 20060218
  Serious: Yes (Hospitalization)
  Sender: FDA-Public Use
  Company Number: PHBS2005AT08815

PATIENT
  Age: 41 Year
  Sex: Female

DRUGS (3)
  1. ZOMETA [Suspect]
     Dosage: 4 MG, QMO
     Route: 042
     Dates: start: 20020601, end: 20050601
  2. ZOLADEX [Concomitant]
     Dosage: 1 DF, QMO
     Route: 030
  3. NOLVADEX [Concomitant]
     Dosage: 1 DF, QD
     Route: 048
     Dates: start: 20020601

REACTIONS (8)
  - ABSCESS JAW [None]
  - ASEPTIC NECROSIS BONE [None]
  - INCISIONAL DRAINAGE [None]
  - OSTEOMYELITIS [None]
  - OSTEONECROSIS [None]
  - SURGERY [None]
  - TOOTH EXTRACTION [None]
  - WOUND DEBRIDEMENT [None]
